FAERS Safety Report 6087704-2 (Version None)
Quarter: 2009Q1

REPORT INFORMATION
  Report Type: 
  Country: None (occurrence: None)
  Receive Date: 20090223
  Receipt Date: 20090210
  Transmission Date: 20090719
  Serious: Yes (Hospitalization)
  Sender: FDA-Public Use
  Company Number: AT-ROCHE-613778

PATIENT
  Sex: Male
  Weight: 67 kg

DRUGS (3)
  1. CAPECITABINE [Suspect]
     Indication: COLON CANCER
     Route: 048
     Dates: start: 20090121
  2. AKTIFERRIN [Suspect]
     Indication: HAEMORRHAGIC ANAEMIA
     Route: 048
     Dates: start: 20081201
  3. PANTOPRAZOLE SODIUM [Suspect]
     Indication: PROPHYLAXIS
     Route: 048
     Dates: start: 20081201

REACTIONS (1)
  - SEROMA [None]
